FAERS Safety Report 8501843-5 (Version None)
Quarter: 2012Q2

REPORT INFORMATION
  Report Type: 
  Country: None (occurrence: None)
  Receive Date: 20120405
  Receipt Date: 20100729
  Transmission Date: 20120825
  Serious: Yes (Disabling, Other)
  Sender: FDA-Public Use
  Company Number: PHHY2010US50417

PATIENT
  Age: 52 Year
  Sex: Female

DRUGS (1)
  1. RECLAST [Suspect]
     Indication: OSTEOPOROSIS
     Dosage: 5 MG /YEAR, INFUSION
     Dates: start: 20100714

REACTIONS (2)
  - BONE PAIN [None]
  - MYALGIA [None]
